FAERS Safety Report 16476349 (Version 1)
Quarter: 2019Q2

REPORT INFORMATION
  Report Type: Report from Study
  Country: CH (occurrence: CH)
  Receive Date: 20190626
  Receipt Date: 20190626
  Transmission Date: 20190711
  Serious: No
  Sender: FDA-Public Use
  Company Number: CH-BEH-2017081206

PATIENT
  Sex: Female

DRUGS (9)
  1. HIZENTRA [Suspect]
     Active Substance: HUMAN IMMUNOGLOBULIN G
     Indication: PRIMARY IMMUNODEFICIENCY SYNDROME
     Dosage: 10 G, QW
     Route: 058
     Dates: start: 20170608
  2. HIZENTRA [Suspect]
     Active Substance: HUMAN IMMUNOGLOBULIN G
     Dosage: 10 G, UNK
     Route: 058
     Dates: start: 201706, end: 201706
  3. HIZENTRA [Suspect]
     Active Substance: HUMAN IMMUNOGLOBULIN G
     Dosage: 8 G, QW
     Route: 065
  4. HIZENTRA [Suspect]
     Active Substance: HUMAN IMMUNOGLOBULIN G
     Dosage: 10 G, UNK
     Route: 058
     Dates: start: 201707, end: 201707
  5. HIZENTRA [Suspect]
     Active Substance: HUMAN IMMUNOGLOBULIN G
     Dosage: 40 ML, TOT
     Route: 058
     Dates: start: 2017, end: 2017
  6. HIZENTRA [Suspect]
     Active Substance: HUMAN IMMUNOGLOBULIN G
     Dosage: 40 ML, QW
     Route: 058
     Dates: start: 2017
  7. HIZENTRA [Suspect]
     Active Substance: HUMAN IMMUNOGLOBULIN G
     Dosage: 8 GRAM, TOT
     Route: 058
  8. HIZENTRA [Suspect]
     Active Substance: HUMAN IMMUNOGLOBULIN G
     Dosage: 40 ML, TOT
     Route: 058
     Dates: start: 201708, end: 201708
  9. HIZENTRA [Suspect]
     Active Substance: HUMAN IMMUNOGLOBULIN G
     Dosage: 8 G, TOT
     Route: 065
     Dates: start: 2018, end: 2018

REACTIONS (13)
  - Infusion site induration [Recovered/Resolved]
  - Administration site reaction [Not Recovered/Not Resolved]
  - Infusion site erythema [Recovered/Resolved]
  - Administration site erythema [Not Recovered/Not Resolved]
  - Administration site swelling [Not Recovered/Not Resolved]
  - Medication error [Recovered/Resolved]
  - Infusion site swelling [Recovered/Resolved]
  - Injection site swelling [Recovered/Resolved]
  - Administration site induration [Not Recovered/Not Resolved]
  - Injection site erythema [Recovered/Resolved]
  - Injection site induration [Recovered/Resolved]
  - Infusion site reaction [Recovered/Resolved]
  - Infection [Recovered/Resolved]

NARRATIVE: CASE EVENT DATE: 2017
